FAERS Safety Report 8450026-6 (Version None)
Quarter: 2012Q2

REPORT INFORMATION
  Report Type: 
  Country: None (occurrence: None)
  Receive Date: 20120614
  Receipt Date: 20120614
  Transmission Date: 20120825
  Serious: Yes (Other)
  Sender: FDA-Public Use
  Company Number: None

PATIENT
  Sex: Female
  Weight: 63.5036 kg

DRUGS (1)
  1. METOPROLOL TARTRATE [Suspect]
     Indication: HYPERTENSION
     Dosage: 50MG 2 TABLETS DAY ORAL MARCH + APRIL 2012
     Route: 048

REACTIONS (2)
  - GASTRIC DISORDER [None]
  - FAECAL INCONTINENCE [None]
